FAERS Safety Report 8552500-0 (Version None)
Quarter: 2012Q3

REPORT INFORMATION
  Report Type: 
  Country: None (occurrence: None)
  Receive Date: 20120731
  Receipt Date: 20120726
  Transmission Date: 20120928
  Serious: Yes (Death)
  Sender: FDA-Public Use
  Company Number: FR-JNJFOC-20120707326

PATIENT

DRUGS (24)
  1. DEXAMETHASONE [Suspect]
     Dosage: FROM DAY 1 TO 4 OF EACH 35 DAYS CYCLE, CYCLE 1
     Route: 065
  2. CHLORAMBUCIL [Suspect]
     Indication: MANTLE CELL LYMPHOMA
     Dosage: FROM DAY 20 TO 29 OF EACH 35 DAYS CYCLE, CYCLE 1
     Route: 065
  3. CHLORAMBUCIL [Suspect]
     Dosage: FROM DAY 20 TO 29 OF EACH 35 DAYS CYCLE, CYCLE 4
     Route: 065
  4. RITUXIMAB [Suspect]
     Dosage: ON DAY 1 (DAY 8 OF CYCLE 1); EACH CYCLE OF 35 DAYS, CYCLE 2
     Route: 065
  5. DOXORUBICIN HYDROCHLORIDE [Suspect]
     Dosage: AS A CONTINUOUS INFUSION FROM DAY 1 TO 4; EACH CYCLE OF 35 DAYS, CYCLE 3
     Route: 065
  6. DOXORUBICIN HYDROCHLORIDE [Suspect]
     Dosage: AS A CONTINUOUS INFUSION FROM DAY 1 TO 4; EACH CYCLE OF 35 DAYS, CYCLE 3
     Route: 042
  7. DOXORUBICIN HYDROCHLORIDE [Suspect]
     Dosage: AS A CONTINUOUS INFUSION FROM DAY 1 TO 4; EACH CYCLE OF 35 DAYS, CYCLE 2
     Route: 042
  8. RITUXIMAB [Suspect]
     Indication: MANTLE CELL LYMPHOMA
     Dosage: ON DAY 1 (DAY 8 OF CYCLE 1);EACH CYCLE OF 35 DAYS, CYCLE 1
     Route: 065
  9. DOXORUBICIN HYDROCHLORIDE [Suspect]
     Indication: MANTLE CELL LYMPHOMA
     Dosage: AS A CONTINUOUS INFUSION FROM DAY 1 TO 4 EACH CYCLE OF 35 DAYS, CYCLE 1
     Route: 042
  10. DOXORUBICIN HYDROCHLORIDE [Suspect]
     Dosage: AS A CONTINUOUS INFUSION FROM DAY 1 TO 4; EACH CYCLE OF 35 DAYS, CYCLE 4
     Route: 042
  11. DOXORUBICIN HYDROCHLORIDE [Suspect]
     Dosage: AS A CONTINUOUS INFUSION FROM DAY 1 TO 4; EACH CYCLE OF 35 DAYS, CYCLE 2
     Route: 065
  12. DEXAMETHASONE [Suspect]
     Dosage: FROM DAY 1 TO 4 OF EACH 35 DAYS CYCLE, CYCLE 2
     Route: 065
  13. RITUXIMAB [Suspect]
     Dosage: ON DAY 1 (DAY 8 OF CYCLE 1); EACH CYCLE OF 35 DAYS, CYCLE 3
     Route: 065
  14. VELCADE [Suspect]
     Dosage: ON DAYS 1, 4, 8 AND 11; EACH CYCLE OF 35 DAYS, CYCLE 4
     Route: 065
  15. VELCADE [Suspect]
     Dosage: ON DAYS 1, 4, 8 AND 11; EACH CYCLE OF 35 DAYS, CYCLE 1
     Route: 065
  16. DEXAMETHASONE [Suspect]
     Dosage: FROM DAY 1 TO 4 OF EACH 35 DAYS CYCLE, CYCLE 3
     Route: 065
  17. RITUXIMAB [Suspect]
     Dosage: ON DAY 1 (DAY 8 OF CYCLE 1); EACH CYCLE OF 35 DAYS, CYCLE 4
     Route: 065
  18. VELCADE [Suspect]
     Dosage: ON DAYS 1, 4, 8 AND 11; EACH CYCLE OF 35 DAYS, CYCLE 2
     Route: 065
  19. DEXAMETHASONE [Suspect]
     Indication: MANTLE CELL LYMPHOMA
     Dosage: FROM DAY 1 TO 4 OF EACH 35 DAYS CYCLE, CYCLE 4
     Route: 065
  20. CHLORAMBUCIL [Suspect]
     Dosage: FROM DAY 20 TO 29 OF EACH 35 DAYS CYCLE, CYCLE 3
     Route: 065
  21. DOXORUBICIN HYDROCHLORIDE [Suspect]
     Dosage: AS A CONTINUOUS INFUSION FROM DAY 1 TO 4 EACH CYCLE OF 35 DAYS, CYCLE 1
     Route: 065
  22. VELCADE [Suspect]
     Indication: MANTLE CELL LYMPHOMA
     Dosage: ON DAYS 1, 4, 8 AND 11; EACH CYCLE OF 35 DAYS, CYCLE 3
     Route: 065
  23. DOXORUBICIN HYDROCHLORIDE [Suspect]
     Dosage: AS A CONTINUOUS INFUSION FROM DAY 1 TO 4; EACH CYCLE OF 35 DAYS, CYCLE 4
     Route: 065
  24. CHLORAMBUCIL [Suspect]
     Dosage: FROM DAY 20 TO 29 OF EACH 35 DAYS CYCLE, CYCLE 2
     Route: 065

REACTIONS (1)
  - TOXICITY TO VARIOUS AGENTS [None]
